FAERS Safety Report 18875944 (Version 9)
Quarter: 2021Q3

REPORT INFORMATION
  Report Type: Spontaneous
  Country: CA (occurrence: CA)
  Receive Date: 20210211
  Receipt Date: 20210907
  Transmission Date: 20211014
  Serious: Yes (Hospitalization, Other)
  Sender: FDA-Public Use
  Company Number: CA-CELLTRION INC.-2021CA000479

PATIENT

DRUGS (10)
  1. INFLECTRA [Suspect]
     Active Substance: INFLIXIMAB-DYYB
     Dosage: 700 MG, AT 0, 2, 6, WEEKS AND THEN EVERY 6 WEEKS,
     Route: 042
     Dates: start: 20210311
  2. INFLECTRA [Suspect]
     Active Substance: INFLIXIMAB-DYYB
     Dosage: 700 MG, AT 0, 2, 6, WEEKS AND THEN EVERY 6 WEEKS,
     Route: 042
     Dates: start: 20210603
  3. HYDROCORTISONE. [Concomitant]
     Active Substance: HYDROCORTISONE
     Indication: PREMEDICATION
     Dosage: 50 MG
     Dates: start: 20210712
  4. INFLECTRA [Suspect]
     Active Substance: INFLIXIMAB-DYYB
     Dosage: 700 MG, AT 0, 2, 6, WEEKS AND THEN EVERY 6 WEEKS,
     Route: 042
     Dates: start: 20210210
  5. INFLECTRA [Suspect]
     Active Substance: INFLIXIMAB-DYYB
     Dosage: 700 MG, EVERY 4 WEEKS
     Route: 042
     Dates: start: 20210712, end: 202108
  6. TYLENOL [Concomitant]
     Active Substance: ACETAMINOPHEN
     Indication: PREMEDICATION
     Dosage: 650 MG
     Dates: start: 20210712
  7. INFLECTRA [Suspect]
     Active Substance: INFLIXIMAB-DYYB
     Dosage: 700 MG, AT 0, 2, 6, WEEKS AND THEN EVERY 6 WEEKS,
     Route: 042
     Dates: start: 20210422
  8. INFLECTRA [Suspect]
     Active Substance: INFLIXIMAB-DYYB
     Dosage: 700 MG, AT 0, 2, 6, WEEKS AND THEN EVERY 6 WEEKS,
     Route: 042
     Dates: start: 20210311
  9. AERIUS (DESLORATADINE) [Concomitant]
     Active Substance: DESLORATADINE
     Indication: PREMEDICATION
     Dosage: 5 MG
     Dates: start: 20210712
  10. INFLECTRA [Suspect]
     Active Substance: INFLIXIMAB-DYYB
     Indication: COLITIS ULCERATIVE
     Dosage: 700 MG, AT 0, 2, 6, WEEKS AND THEN EVERY 6 WEEKS,
     Route: 042
     Dates: start: 20210128, end: 20210603

REACTIONS (12)
  - Lower gastrointestinal haemorrhage [Unknown]
  - Viral infection [Unknown]
  - Urticaria [Unknown]
  - Off label use [Unknown]
  - Weight increased [Unknown]
  - Off label use [Unknown]
  - Drug level below therapeutic [Unknown]
  - Inappropriate schedule of product administration [Unknown]
  - Swelling face [Recovered/Resolved]
  - Intentional product use issue [Unknown]
  - Tongue pruritus [Recovering/Resolving]
  - Weight decreased [Unknown]

NARRATIVE: CASE EVENT DATE: 2021
